FAERS Safety Report 11313994 (Version 1)
Quarter: 2015Q3

REPORT INFORMATION
  Report Type: Spontaneous
  Country: US (occurrence: US)
  Receive Date: 20150727
  Receipt Date: 20150727
  Transmission Date: 20151125
  Serious: No
  Sender: FDA-Public Use
  Company Number: US-ASTRAZENECA-2015SE68954

PATIENT
  Age: 20318 Day
  Sex: Male
  Weight: 145.2 kg

DRUGS (4)
  1. BYDUREON [Suspect]
     Active Substance: EXENATIDE
     Indication: TYPE 2 DIABETES MELLITUS
     Dosage: 2 MG 4 COUNT WEEK
     Route: 058
     Dates: start: 20150712
  2. GLIPIZIDE. [Concomitant]
     Active Substance: GLIPIZIDE
  3. BYDUREON [Suspect]
     Active Substance: EXENATIDE
     Indication: GLYCOSYLATED HAEMOGLOBIN DECREASED
     Dosage: 2 MG 4 COUNT WEEK
     Route: 058
     Dates: start: 20150712
  4. METFORMIN [Concomitant]
     Active Substance: METFORMIN HYDROCHLORIDE

REACTIONS (3)
  - Swelling face [Unknown]
  - Glycosylated haemoglobin increased [Unknown]
  - Mouth swelling [Unknown]

NARRATIVE: CASE EVENT DATE: 20150714
